FAERS Safety Report 10742614 (Version 2)
Quarter: 2015Q1

REPORT INFORMATION
  Report Type: Report from Study
  Country: US (occurrence: US)
  Receive Date: 20150127
  Receipt Date: 20150130
  Transmission Date: 20150721
  Serious: Yes (Hospitalization)
  Sender: FDA-Public Use
  Company Number: PHEH2015US001430

PATIENT
  Age: 39 Year
  Sex: Female
  Weight: 104.76 kg

DRUGS (1)
  1. GILENYA [Suspect]
     Active Substance: FINGOLIMOD HYDROCHLORIDE
     Indication: MULTIPLE SCLEROSIS
     Dosage: 0.5 MG, QD
     Route: 048
     Dates: start: 20140520, end: 20141216

REACTIONS (3)
  - Herpes zoster [Recovered/Resolved]
  - Paralysis [Unknown]
  - Oral herpes [Unknown]

NARRATIVE: CASE EVENT DATE: 20141213
